FAERS Safety Report 10636210 (Version 1)
Quarter: 2014Q4

REPORT INFORMATION
  Report Type: Report from Study
  Country: US (occurrence: US)
  Receive Date: 20141205
  Receipt Date: 20141205
  Transmission Date: 20150529
  Serious: Yes (Hospitalization)
  Sender: FDA-Public Use
  Company Number: US-ROCHE-1501369

PATIENT
  Age: 51 Year
  Sex: Male
  Weight: 76.3 kg

DRUGS (3)
  1. OCTREOTIDE ACETATE. [Suspect]
     Active Substance: OCTREOTIDE ACETATE
     Indication: CARCINOID TUMOUR
     Dosage: LAR DEPOT:  DAY 1, MOST RECENT DOSE RECEIVED ON 19/AUG/2014 (TOTAL DOSE RECEIVED: 20 MG)
     Route: 030
     Dates: start: 20120228
  2. BEVACIZUMAB [Suspect]
     Active Substance: BEVACIZUMAB
     Indication: CARCINOID TUMOUR
     Dosage: 30-90 MIN, DAY 1, CYCLE 1 ONLY?MOST RECENT DOSE RECEIVED ON : 19/AUG/2014 (TOTAL DOSE RECEIVED: 1267
     Route: 042
     Dates: start: 20120228
  3. OCTREOTIDE [Suspect]
     Active Substance: OCTREOTIDE
     Indication: CARCINOID TUMOUR
     Dosage: TEST DOSE: SHORT-ACTING OCTREOTIDE, DAY 1 CYCLE 1 ONLY
     Route: 058
     Dates: start: 20120228

REACTIONS (1)
  - Cholecystitis [Recovered/Resolved]

NARRATIVE: CASE EVENT DATE: 20140919
